FAERS Safety Report 10777718 (Version 1)
Quarter: 2015Q1

REPORT INFORMATION
  Report Type: Spontaneous
  Country: US (occurrence: US)
  Receive Date: 20150209
  Receipt Date: 20150209
  Transmission Date: 20150721
  Serious: No
  Sender: FDA-Public Use
  Company Number: US-GLAXOSMITHKLINE-US2014030830

PATIENT
  Age: 67 Year
  Sex: Female

DRUGS (6)
  1. LIPITOR [Concomitant]
     Active Substance: ATORVASTATIN CALCIUM
  2. VALTREX [Suspect]
     Active Substance: VALACYCLOVIR HYDROCHLORIDE
     Dosage: 2 G, SINGLE
     Dates: start: 20141202, end: 20141202
  3. LISINOPRIL. [Concomitant]
     Active Substance: LISINOPRIL
  4. VALTREX [Suspect]
     Active Substance: VALACYCLOVIR HYDROCHLORIDE
     Indication: PRODUCT USED FOR UNKNOWN INDICATION
     Dosage: 1 G, QD
     Route: 048
  5. VALTREX [Suspect]
     Active Substance: VALACYCLOVIR HYDROCHLORIDE
     Dosage: 3 G, SINGLE
     Dates: start: 20141201, end: 20141201
  6. BONIVA [Concomitant]
     Active Substance: IBANDRONATE SODIUM

REACTIONS (9)
  - Oropharyngeal pain [Unknown]
  - Lip swelling [Unknown]
  - Nasal congestion [Unknown]
  - Sinusitis [Unknown]
  - Rhinorrhoea [Unknown]
  - Stomatitis [Unknown]
  - Cough [Unknown]
  - Circumoral oedema [Unknown]
  - Malaise [Unknown]

NARRATIVE: CASE EVENT DATE: 20141129
